FAERS Safety Report 11679386 (Version 2)
Quarter: 2015Q4

REPORT INFORMATION
  Report Type: Spontaneous
  Country: US (occurrence: US)
  Receive Date: 20151027
  Receipt Date: 20151104
  Transmission Date: 20160304
  Serious: No
  Sender: FDA-Public Use
  Company Number: US-ELI_LILLY_AND_COMPANY-US201002002671

PATIENT
  Age: 81 Year
  Sex: Female
  Weight: 51.7 kg

DRUGS (6)
  1. FORTEO [Suspect]
     Active Substance: TERIPARATIDE
     Indication: OSTEOPOROSIS
     Dosage: 20 UG, DAILY (1/D)
     Route: 058
     Dates: start: 200909
  2. FORTEO [Suspect]
     Active Substance: TERIPARATIDE
     Dosage: 20 UG, DAILY (1/D)
     Route: 058
  3. OSCAL 500-D [Concomitant]
     Dosage: UNK, 2/D
  4. VITAMIN C [Concomitant]
     Active Substance: ASCORBIC ACID
  5. XALATAN [Concomitant]
     Active Substance: LATANOPROST
  6. ARIMIDEX [Concomitant]
     Active Substance: ANASTROZOLE

REACTIONS (9)
  - Burning sensation [Unknown]
  - Visual impairment [Unknown]
  - Mobility decreased [Unknown]
  - Musculoskeletal stiffness [Unknown]
  - Injection site bruising [Not Recovered/Not Resolved]
  - Pain [Unknown]
  - Peripheral swelling [Unknown]
  - Arthritis [Unknown]
  - Eye disorder [Unknown]

NARRATIVE: CASE EVENT DATE: 201009
